FAERS Safety Report 5387259-1 (Version None)
Quarter: 2007Q3

REPORT INFORMATION
  Report Type: 
  Country: None (occurrence: None)
  Receive Date: 20070711
  Receipt Date: 20070629
  Transmission Date: 20080115
  Serious: Yes (Death, Hospitalization)
  Sender: FDA-Public Use
  Company Number: MEDI-0005849

PATIENT
  Age: 9 Month
  Sex: Male
  Weight: 4 kg

DRUGS (1)
  1. SYNAGIS [Suspect]
     Indication: ANTIVIRAL PROPHYLAXIS
     Dosage: INTRAMUSCULAR
     Route: 030
     Dates: start: 20070508, end: 20070508

REACTIONS (4)
  - BRONCHIOLITIS [None]
  - DISEASE RECURRENCE [None]
  - GASTROINTESTINAL INFECTION [None]
  - PROCEDURAL COMPLICATION [None]
